FAERS Safety Report 8364557-0 (Version None)
Quarter: 2012Q2

REPORT INFORMATION
  Report Type: 
  Country: None (occurrence: None)
  Receive Date: 20120516
  Receipt Date: 20120507
  Transmission Date: 20120825
  Serious: Yes (Hospitalization)
  Sender: FDA-Public Use
  Company Number: US-BAYER-2012-032334

PATIENT
  Age: 47 Year
  Sex: Female

DRUGS (6)
  1. MULTI-VITAMIN [Concomitant]
     Dosage: DAILY
     Route: 048
     Dates: start: 20050715
  2. ESTER C [Concomitant]
     Dosage: DAILY
     Route: 048
     Dates: start: 20050715
  3. LEXAPRO [Concomitant]
  4. CORAL CALCIUM [Concomitant]
     Dosage: DAILY
     Route: 048
     Dates: start: 20050715
  5. YASMIN [Suspect]
     Dosage: UNK
     Dates: start: 20050301, end: 20050701
  6. LEXAPRO [Concomitant]
     Dosage: 20 MG, UNK
     Route: 048
     Dates: start: 20050715

REACTIONS (6)
  - ANXIETY [None]
  - INJURY [None]
  - PAIN [None]
  - GENERAL PHYSICAL HEALTH DETERIORATION [None]
  - EMOTIONAL DISTRESS [None]
  - PULMONARY EMBOLISM [None]
